FAERS Safety Report 8790477 (Version 1)
Quarter: 2012Q4

REPORT INFORMATION
  Report Type: Spontaneous
  Country: IT (occurrence: None)
  Receive Date: 20120906
  Receipt Date: 20120906
  Transmission Date: 20130627
  Serious: Yes (Life-Threatening, Hospitalization)
  Sender: FDA-Public Use
  Company Number: LORA20120002

PATIENT
  Age: 40 Year
  Sex: Female

DRUGS (5)
  1. LORAZEPAM [Suspect]
  2. ARIPIPRAZOLE [Suspect]
  3. CLOTIAPINE [Suspect]
  4. ZUCLOPENTHIXOL [Suspect]
     Route: 030
  5. OLANZAPINE [Suspect]

REACTIONS (5)
  - Catatonia [None]
  - Pyrexia [None]
  - Rhabdomyolysis [None]
  - Leukocytosis [None]
  - Neuroleptic malignant syndrome [None]
